FAERS Safety Report 6768704-3 (Version None)
Quarter: 2010Q2

REPORT INFORMATION
  Report Type: 
  Country: None (occurrence: None)
  Receive Date: 20100614
  Receipt Date: 20100601
  Transmission Date: 20101027
  Serious: No
  Sender: FDA-Public Use
  Company Number: US-B.I. PHARMACEUTICALS,INC./RIDGEFIELD-2010-BP-06219BP

PATIENT

DRUGS (1)
  1. MIRAPEX [Suspect]
     Indication: RESTLESS LEGS SYNDROME
     Dates: start: 19970101, end: 20060101

REACTIONS (4)
  - COMPULSIVE SHOPPING [None]
  - FEELING ABNORMAL [None]
  - FOOD ALLERGY [None]
  - SOMNOLENCE [None]
